FAERS Safety Report 7289886-3 (Version None)
Quarter: 2011Q1

REPORT INFORMATION
  Report Type: 
  Country: None (occurrence: None)
  Receive Date: 20110214
  Receipt Date: 20110131
  Transmission Date: 20110831
  Serious: Yes (Other)
  Sender: FDA-Public Use
  Company Number: PT-AMGEN-PRTSP2011006814

PATIENT
  Age: 56 Year
  Sex: Female
  Weight: 89 kg

DRUGS (8)
  1. FOLICIL [Concomitant]
     Indication: MACROCYTOSIS
     Dosage: 5 MG, QD
     Route: 048
     Dates: start: 20100720
  2. HYDROCHLOROTHIAZIDE [Concomitant]
     Dosage: UNK UNK, QD
  3. CO-DIOVAN [Concomitant]
     Indication: HYPERTENSION
     Dosage: 1 DF, QD
     Route: 048
     Dates: start: 20080101
  4. THYRAX                             /00068001/ [Concomitant]
     Indication: THYROIDITIS
     Dosage: 1 DF, QD
     Route: 048
     Dates: start: 20070101
  5. ENBREL [Suspect]
     Indication: PSORIASIS
     Dosage: 50 MG, 1X/WK
     Route: 058
     Dates: start: 20100520, end: 20100817
  6. ENBREL [Suspect]
     Dosage: 50 MG, 2X/WEEK
     Route: 058
     Dates: start: 20100818, end: 20100910
  7. GLIMEPIRIDE [Concomitant]
     Dosage: 1 DF, QD
     Dates: start: 20090801
  8. CLAVULIN DUO [Concomitant]
     Indication: URINARY TRACT INFECTION
     Dosage: 2 G, QD
     Dates: start: 20100720

REACTIONS (4)
  - CONDITION AGGRAVATED [None]
  - DRUG INEFFECTIVE [None]
  - PSORIASIS [None]
  - WEIGHT INCREASED [None]
